FAERS Safety Report 18185679 (Version 1)
Quarter: 2020Q3

REPORT INFORMATION
  Report Type: Spontaneous
  Country: DE (occurrence: DE)
  Receive Date: 20200824
  Receipt Date: 20200824
  Transmission Date: 20201103
  Serious: Yes (Hospitalization)
  Sender: FDA-Public Use
  Company Number: DE-TEVA-2020-DE-1817135

PATIENT
  Age: 80 Year
  Sex: Male

DRUGS (10)
  1. METOPROLOL. [Concomitant]
     Active Substance: METOPROLOL
     Dosage: 23.75 MILLIGRAM DAILY; 0?1?0?0
     Route: 048
  2. TEMOZOLOMID [Suspect]
     Active Substance: TEMOZOLOMIDE
     Dosage: NK MG
     Dates: end: 20200526
  3. ZOLPIDEM [Concomitant]
     Active Substance: ZOLPIDEM TARTRATE
     Dosage: 5 MILLIGRAM DAILY; 0?0?0?1
     Route: 048
  4. GLIMEPIRIDE. [Concomitant]
     Active Substance: GLIMEPIRIDE
     Dosage: 2 MILLIGRAM DAILY; 1?0?1?0
     Route: 048
  5. METOPROLOL. [Concomitant]
     Active Substance: METOPROLOL
     Dosage: 47.5 MILLIGRAM DAILY; 1?0?0?0
     Route: 048
  6. DEXAMETHASONE. [Concomitant]
     Active Substance: DEXAMETHASONE
     Dosage: 4 MILLIGRAM DAILY; 1?0?0?0
     Route: 048
  7. METAMIZOL [Concomitant]
     Active Substance: METAMIZOLE SODIUM
     Dosage: 2000 MILLIGRAM DAILY; 1?1?1?1
     Route: 048
  8. PANTOPRAZOL [Concomitant]
     Active Substance: PANTOPRAZOLE SODIUM
     Dosage: 40 MILLIGRAM DAILY; 1?0?0?0
     Route: 048
  9. DABIGATRAN [Concomitant]
     Active Substance: DABIGATRAN
     Dosage: 300 MILLIGRAM DAILY; 1?0?1?0
     Route: 048
  10. DIGITOXIN [Concomitant]
     Active Substance: DIGITOXIN
     Dosage: .5 MILLIGRAM DAILY; 1?0?0?0
     Route: 048

REACTIONS (3)
  - Oedema peripheral [Recovering/Resolving]
  - General physical health deterioration [Recovering/Resolving]
  - Gait disturbance [Recovering/Resolving]

NARRATIVE: CASE EVENT DATE: 20200530
